FAERS Safety Report 5420463-2 (Version None)
Quarter: 2007Q3

REPORT INFORMATION
  Report Type: 
  Country: None (occurrence: None)
  Receive Date: 20070817
  Receipt Date: 20070817
  Transmission Date: 20080115
  Serious: Yes (Other)
  Sender: FDA-Public Use
  Company Number: None

PATIENT
  Age: 36 Year
  Sex: Female
  Weight: 107 kg

DRUGS (1)
  1. ABILIFY [Suspect]
     Dosage: 30MG PO
     Route: 048

REACTIONS (4)
  - AGGRESSION [None]
  - HOSTILITY [None]
  - IRRITABILITY [None]
  - PARANOIA [None]
